FAERS Safety Report 4373767-9 (Version None)
Quarter: 2004Q2

REPORT INFORMATION
  Report Type: 
  Country: None (occurrence: None)
  Receive Date: 20040603
  Receipt Date: 20040519
  Transmission Date: 20050107
  Serious: Yes (Hospitalization)
  Sender: FDA-Public Use
  Company Number: K200400750

PATIENT
  Age: 61 Year
  Sex: Male

DRUGS (6)
  1. ALTACE [Suspect]
     Indication: HYPERTENSION
     Dosage: 5 MG, QD MORNING, ORAL
     Route: 048
     Dates: start: 20000101
  2. INSUMAN RAPID(INSULIN HUMAN) INJECTION, 24IU [Suspect]
     Indication: DIABETES MELLITUS NON-INSULIN-DEPENDENT
     Dosage: SEE IMAGE
     Route: 058
     Dates: start: 20000101, end: 20031101
  3. INSUMAN RAPID(INSULIN HUMAN) INJECTION, 24IU [Suspect]
     Indication: DIABETES MELLITUS NON-INSULIN-DEPENDENT
     Dosage: SEE IMAGE
     Route: 058
     Dates: start: 20031101
  4. INSUMAN RAPID(INSULIN HUMAN) INJECTION, 24IU [Suspect]
     Indication: DIABETES MELLITUS NON-INSULIN-DEPENDENT
     Dosage: SEE IMAGE
     Route: 058
     Dates: start: 20031101
  5. INSUMAN BASAL(INSULIN HUMAN INJECTION, ISOPHANE) [Suspect]
     Indication: DIABETES MELLITUS NON-INSULIN-DEPENDENT
     Dosage: 12 IU, QD SOLUTION FOR INJECTION, SUBCUTANEOUS
     Route: 058
     Dates: start: 20000101, end: 20031101
  6. GLUCOPHAGE [Suspect]
     Indication: DIABETES MELLITUS NON-INSULIN-DEPENDENT
     Dosage: 1700 MG, QD, ORAL
     Route: 048
     Dates: start: 19990101

REACTIONS (4)
  - DECREASED APPETITE [None]
  - DRUG INTERACTION [None]
  - MUSCLE CRAMP [None]
  - SHOCK HYPOGLYCAEMIC [None]
